FAERS Safety Report 19198359 (Version 1)
Quarter: 2021Q2

REPORT INFORMATION
  Report Type: Spontaneous
  Country: US (occurrence: US)
  Receive Date: 20210430
  Receipt Date: 20210430
  Transmission Date: 20210717
  Serious: Yes (Death)
  Sender: FDA-Public Use
  Company Number: US-ROCHE-2821498

PATIENT
  Sex: Male

DRUGS (2)
  1. RITUXAN [Suspect]
     Active Substance: RITUXIMAB
     Indication: BURKITT^S LYMPHOMA
     Dosage: 10 MG/ML
     Route: 041
     Dates: start: 202102
  2. RITUXAN [Suspect]
     Active Substance: RITUXIMAB
     Indication: AGRANULOCYTOSIS

REACTIONS (1)
  - Death [Fatal]
